FAERS Safety Report 8988129 (Version 1)
Quarter: 2012Q4

REPORT INFORMATION
  Report Type: Report from Study
  Country: RU (occurrence: RU)
  Receive Date: 20121227
  Receipt Date: 20121227
  Transmission Date: 20130627
  Serious: Yes (Hospitalization)
  Sender: FDA-Public Use
  Company Number: RU-ROCHE-1173783

PATIENT
  Age: 36 Year
  Sex: Female

DRUGS (3)
  1. TRASTUZUMAB [Suspect]
     Indication: BREAST CANCER
     Route: 065
  2. BEVACIZUMAB [Suspect]
     Indication: BREAST CANCER
     Route: 065
  3. CAPECITABINE [Suspect]
     Indication: BREAST CANCER
     Route: 065

REACTIONS (2)
  - Asthma [Unknown]
  - Cardiotoxicity [Recovered/Resolved]
